FAERS Safety Report 22252295 (Version 1)
Quarter: 2023Q2

REPORT INFORMATION
  Report Type: Spontaneous
  Country: CN (occurrence: None)
  Receive Date: 20230426
  Receipt Date: 20230426
  Transmission Date: 20230722
  Serious: Yes (Hospitalization, Other)
  Sender: FDA-Public Use
  Company Number: CN-ROCHE-3335942

PATIENT
  Age: 55 Year
  Sex: Female

DRUGS (4)
  1. HERCEPTIN [Suspect]
     Active Substance: TRASTUZUMAB
     Indication: Invasive breast carcinoma
     Dosage: 6 CYCLES, MAINTENANCE THERAPY FROM APR 2019 TO APR 2020, 17 TIMES
     Route: 065
     Dates: start: 201901
  2. KADCYLA [Suspect]
     Active Substance: ADO-TRASTUZUMAB EMTANSINE
     Indication: Invasive breast carcinoma
     Dosage: FROM JUL 2021 TO MAY 2022, 14 CYCLES
     Route: 065
  3. DOCETAXEL [Concomitant]
     Active Substance: DOCETAXEL
     Indication: Invasive breast carcinoma
     Dosage: 6 CYCLES
     Dates: start: 201901
  4. CARBOPLATIN [Concomitant]
     Active Substance: CARBOPLATIN
     Indication: Invasive breast carcinoma
     Dosage: AUC=6, 6 CYCLES
     Dates: start: 201901

REACTIONS (2)
  - Diarrhoea [Unknown]
  - Myelosuppression [Unknown]
